FAERS Safety Report 7609530-2 (Version None)
Quarter: 2011Q3

REPORT INFORMATION
  Report Type: 
  Country: None (occurrence: None)
  Receive Date: 20110714
  Receipt Date: 20110711
  Transmission Date: 20111222
  Serious: Yes (Death)
  Sender: FDA-Public Use
  Company Number: US-UCBSA-031429

PATIENT
  Sex: Male
  Weight: 78.7 kg

DRUGS (7)
  1. ASPIRIN [Concomitant]
     Indication: CARDIOVASCULAR EVENT PROPHYLAXIS
     Route: 048
     Dates: start: 20040101, end: 20110410
  2. CETAPHIL [Concomitant]
     Indication: RASH ERYTHEMATOUS
     Dosage: 1 APP
     Route: 061
     Dates: start: 20110217, end: 20110410
  3. CELEBREX [Concomitant]
     Indication: PSORIATIC ARTHROPATHY
     Route: 048
     Dates: start: 20070301, end: 20110410
  4. CERTOLIZUMAB PEGOL [Suspect]
     Dosage: SINCE WEEK 6
     Route: 058
     Dates: start: 20110127, end: 20110406
  5. FOLIC ACID [Concomitant]
     Indication: PSORIATIC ARTHROPATHY
     Route: 048
     Dates: start: 20040909, end: 20110410
  6. CERTOLIZUMAB PEGOL [Suspect]
     Indication: PSORIATIC ARTHROPATHY
     Dosage: AT WEEK 0, 2 AND 4
     Route: 058
  7. METHOTREXATE [Concomitant]
     Indication: PSORIATIC ARTHROPATHY
     Route: 048
     Dates: start: 20081003, end: 20110410

REACTIONS (1)
  - CARDIAC ARREST [None]
